FAERS Safety Report 7241605-2 (Version None)
Quarter: 2011Q1

REPORT INFORMATION
  Report Type: 
  Country: None (occurrence: None)
  Receive Date: 20110114
  Receipt Date: 20101207
  Transmission Date: 20110831
  Serious: Yes (Other)
  Sender: FDA-Public Use
  Company Number: ALA_01464_2011

PATIENT
  Sex: Female

DRUGS (1)
  1. REGLAN [Suspect]
     Indication: PRODUCT USED FOR UNKNOWN INDICATION
     Dosage: (DF ORAL)
     Dates: start: 20050101, end: 20100601

REACTIONS (5)
  - MUSCLE SPASMS [None]
  - EMOTIONAL DISORDER [None]
  - ECONOMIC PROBLEM [None]
  - RESTLESS LEGS SYNDROME [None]
  - CONVULSION [None]
